FAERS Safety Report 8150273-7 (Version None)
Quarter: 2012Q1

REPORT INFORMATION
  Report Type: 
  Country: None (occurrence: None)
  Receive Date: 20120220
  Receipt Date: 20120217
  Transmission Date: 20120608
  Serious: No
  Sender: FDA-Public Use
  Company Number: US-PFIZER INC-2012043625

PATIENT
  Sex: Female
  Weight: 110.2 kg

DRUGS (1)
  1. CHANTIX [Suspect]
     Indication: SMOKING CESSATION THERAPY
     Dosage: 0.5 MG, 1X/DAY
     Route: 048
     Dates: start: 20120213

REACTIONS (5)
  - FATIGUE [None]
  - AGITATION [None]
  - IRRITABILITY [None]
  - NERVOUSNESS [None]
  - ANXIETY [None]
